FAERS Safety Report 20657207 (Version 3)
Quarter: 2022Q2

REPORT INFORMATION
  Report Type: Spontaneous
  Country: US (occurrence: US)
  Receive Date: 20220331
  Receipt Date: 20220606
  Transmission Date: 20220721
  Serious: Yes (Other)
  Sender: FDA-Public Use
  Company Number: US-CELLTRION INC.-2022US003784

PATIENT

DRUGS (2)
  1. TRUXIMA [Suspect]
     Active Substance: RITUXIMAB-ABBS
     Indication: Multiple sclerosis
     Dosage: 500 MG Q 6 MONTHS
     Dates: start: 20210701
  2. TRUXIMA [Suspect]
     Active Substance: RITUXIMAB-ABBS
     Dosage: 500 MG Q 39 WEEKS
     Dates: start: 20220117

REACTIONS (3)
  - Multiple sclerosis [Unknown]
  - Hypersensitivity [Recovered/Resolved]
  - Off label use [Unknown]
